FAERS Safety Report 9318017 (Version 1)
Quarter: 2013Q2

REPORT INFORMATION
  Report Type: Spontaneous
  Country: US (occurrence: US)
  Receive Date: 20130530
  Receipt Date: 20130530
  Transmission Date: 20140414
  Serious: No
  Sender: FDA-Public Use
  Company Number: US-GLAXOSMITHKLINE-A1000332A

PATIENT
  Age: 60 Year
  Sex: Male

DRUGS (6)
  1. VENTOLIN [Suspect]
     Indication: DYSPNOEA
     Dosage: 2PUFF PER DAY
     Route: 055
     Dates: start: 20121103
  2. SALAGEN [Concomitant]
  3. AMBIEN [Concomitant]
  4. VICODIN [Concomitant]
  5. LIPITOR [Concomitant]
  6. LANSOPRAZOLE [Concomitant]

REACTIONS (3)
  - Toothache [Recovered/Resolved]
  - Gingival pain [Unknown]
  - Sensitivity of teeth [Unknown]
